FAERS Safety Report 12688415 (Version 2)
Quarter: 2016Q3

REPORT INFORMATION
  Report Type: Report from Study
  Country: US (occurrence: US)
  Receive Date: 20160825
  Receipt Date: 20160929
  Transmission Date: 20161109
  Serious: Yes (Other)
  Sender: FDA-Public Use
  Company Number: US-GILEAD-2016-0229997

PATIENT
  Age: 75 Year
  Sex: Male

DRUGS (2)
  1. RANOLAZINE [Suspect]
     Active Substance: RANOLAZINE
     Dosage: 1000 MG, UNK
     Route: 048
     Dates: start: 2015, end: 201605
  2. RANOLAZINE [Suspect]
     Active Substance: RANOLAZINE
     Indication: ANGINA PECTORIS
     Dosage: 500 MG, UNK
     Route: 048
     Dates: start: 201606

REACTIONS (2)
  - Stent placement [Unknown]
  - Chest pain [Unknown]

NARRATIVE: CASE EVENT DATE: 201605
